FAERS Safety Report 10401990 (Version 1)
Quarter: 2014Q3

REPORT INFORMATION
  Report Type: Spontaneous
  Country: US (occurrence: None)
  Receive Date: 20140820
  Receipt Date: 20140820
  Transmission Date: 20150326
  Serious: Yes (Life-Threatening, Hospitalization)
  Sender: FDA-Public Use
  Company Number: None

PATIENT
  Age: 77 Year
  Sex: Female
  Weight: 42 kg

DRUGS (1)
  1. APIXIBAN [Suspect]
     Active Substance: APIXABAN
     Indication: ATRIAL FIBRILLATION
     Route: 047
     Dates: start: 20140522, end: 20140730

REACTIONS (3)
  - Fall [None]
  - Subarachnoid haemorrhage [None]
  - Skin abrasion [None]

NARRATIVE: CASE EVENT DATE: 20140730
